FAERS Safety Report 6187399-3 (Version None)
Quarter: 2009Q2

REPORT INFORMATION
  Report Type: 
  Country: None (occurrence: None)
  Receive Date: 20090512
  Receipt Date: 20090504
  Transmission Date: 20091009
  Serious: Yes (Other)
  Sender: FDA-Public Use
  Company Number: B0573470A

PATIENT
  Sex: Male

DRUGS (4)
  1. AVODART [Suspect]
     Route: 065
  2. MOLSIDOMIN [Concomitant]
  3. ASAFLOW [Concomitant]
  4. LIPITOR [Concomitant]

REACTIONS (1)
  - URINARY BLADDER POLYP [None]
